FAERS Safety Report 23832319 (Version 1)
Quarter: 2024Q2

REPORT INFORMATION
  Report Type: Spontaneous
  Country: CA (occurrence: US)
  Receive Date: 20240508
  Receipt Date: 20240508
  Transmission Date: 20240715
  Serious: No
  Sender: FDA-Public Use
  Company Number: CA-Merz Pharmaceuticals GmbH-24-01319

PATIENT
  Sex: Female

DRUGS (1)
  1. XEOMIN [Suspect]
     Active Substance: INCOBOTULINUMTOXINA
     Indication: Bruxism

REACTIONS (3)
  - Respiration abnormal [Unknown]
  - Dysphagia [Unknown]
  - Off label use [Unknown]
